FAERS Safety Report 15523504 (Version 2)
Quarter: 2022Q2

REPORT INFORMATION
  Report Type: Report from Study
  Country: US (occurrence: None)
  Receive Date: 20181018
  Receipt Date: 20220512
  Transmission Date: 20220721
  Serious: Yes (Hospitalization, Other)
  Sender: FDA-Public Use
  Company Number: US-ROCHE-2155342

PATIENT
  Age: 22 Year
  Sex: Female
  Weight: 50.7 kg

DRUGS (2)
  1. ATEZOLIZUMAB [Suspect]
     Active Substance: ATEZOLIZUMAB
     Indication: Alveolar soft part sarcoma
     Dosage: DATE OF LAST DOSE OF ATEZOLIZUMAB : 31/JUL/2017, 29/MAY/2018
     Route: 042
     Dates: start: 20170508
  2. OXYCODONE [Concomitant]
     Active Substance: OXYCODONE

REACTIONS (3)
  - Tumour pain [Unknown]
  - Fracture [Unknown]
  - Pulmonary haemorrhage [Unknown]

NARRATIVE: CASE EVENT DATE: 20170801
